FAERS Safety Report 4537210-9 (Version None)
Quarter: 2004Q4

REPORT INFORMATION
  Report Type: 
  Country: None (occurrence: None)
  Receive Date: 20041221
  Receipt Date: 20041213
  Transmission Date: 20050328
  Serious: Yes (Death, Hospitalization, Other)
  Sender: FDA-Public Use
  Company Number: 163-20785-04020740

PATIENT
  Age: 73 Year
  Sex: Female
  Weight: 56 kg

DRUGS (14)
  1. THALOMID [Suspect]
     Indication: MULTIPLE MYELOMA
     Dosage: 150-200 MG, QD, ORAL
     Route: 048
     Dates: start: 20030724, end: 20040119
  2. DEXAMETHASONE [Suspect]
     Indication: MULTIPLE MYELOMA
     Dosage: 40 MG, QD, ORAL
     Route: 048
     Dates: start: 20031219, end: 20031222
  3. CYCLOPHOSPHAMIDE [Suspect]
     Indication: MULTIPLE MYELOMA
     Dosage: 650 MG, X4D, INTRAVENOUS
     Route: 042
     Dates: start: 20031219, end: 20031222
  4. ETOPOSIDE [Suspect]
     Dosage: 65 MG, X4D, INTRAVENOUS
     Route: 042
     Dates: start: 20031219, end: 20031222
  5. CISPLATIN [Suspect]
     Indication: MULTIPLE MYELOMA
     Dosage: 65 MG, X4D, INTRAVENOUS
     Route: 042
     Dates: start: 20031219, end: 20031222
  6. ACYCLOVIR [Concomitant]
  7. MAGNESIUM OXIDE (MAGNESIUM OXIDE) [Concomitant]
  8. DIGOXIN (DIGOXIN) (SOLUTION) [Concomitant]
  9. MULTIVITAMIN (MULTIVITAMIN) (TABLETS) [Concomitant]
  10. ALDACTONE [Concomitant]
  11. SYNTHROID [Concomitant]
  12. FIBERCON (POLYCARBOPHIL CALCIUM) [Concomitant]
  13. IRON (IRON) [Concomitant]
  14. DILTIAZEM CD (DILTIAZEM HYDROCHLORIDE) [Concomitant]

REACTIONS (49)
  - APHASIA [None]
  - ASTHENIA [None]
  - ATRIAL FIBRILLATION [None]
  - BLOOD THYROID STIMULATING HORMONE INCREASED [None]
  - BLOOD UREA INCREASED [None]
  - C-REACTIVE PROTEIN INCREASED [None]
  - CARDIAC FAILURE CONGESTIVE [None]
  - CARDIOMYOPATHY [None]
  - CATHETER RELATED INFECTION [None]
  - CD4 LYMPHOCYTES DECREASED [None]
  - COMMUNICATION DISORDER [None]
  - CONFUSIONAL STATE [None]
  - CONSTIPATION [None]
  - DEEP VEIN THROMBOSIS [None]
  - DEHYDRATION [None]
  - DEPRESSION [None]
  - DISEASE PROGRESSION [None]
  - DISORIENTATION [None]
  - FEBRILE NEUTROPENIA [None]
  - GENERALISED OEDEMA [None]
  - HAEMATOCRIT DECREASED [None]
  - HAEMATOPOIETIC STEM CELL MOBILISATION [None]
  - HAEMOGLOBIN DECREASED [None]
  - HYPERTENSION [None]
  - HYPOKALAEMIA [None]
  - HYPOMAGNESAEMIA [None]
  - HYPOTHYROIDISM [None]
  - HYPOVOLAEMIA [None]
  - INFECTION [None]
  - INTESTINAL PERFORATION [None]
  - LABORATORY TEST ABNORMAL [None]
  - LYMPHOCYTE PERCENTAGE DECREASED [None]
  - MEAN CELL VOLUME ABNORMAL [None]
  - MENTAL DISORDER [None]
  - MENTAL IMPAIRMENT [None]
  - MENTAL STATUS CHANGES [None]
  - MUCOSAL INFLAMMATION [None]
  - MUTISM [None]
  - OEDEMA PERIPHERAL [None]
  - PLASMACYTOMA [None]
  - PLEURAL EFFUSION [None]
  - SEPSIS [None]
  - SPEECH DISORDER [None]
  - STAPHYLOCOCCAL BACTERAEMIA [None]
  - STAPHYLOCOCCAL INFECTION [None]
  - STARING [None]
  - VENTRICULAR EXTRASYSTOLES [None]
  - VIRAL UPPER RESPIRATORY TRACT INFECTION [None]
  - WEIGHT DECREASED [None]
